FAERS Safety Report 10046352 (Version 1)
Quarter: 2014Q1

REPORT INFORMATION
  Report Type: Spontaneous
  Country: US (occurrence: US)
  Receive Date: 20140331
  Receipt Date: 20140331
  Transmission Date: 20141002
  Serious: No
  Sender: FDA-Public Use
  Company Number: US-BIOGENIDEC-2014BI027352

PATIENT
  Age: 44 Year
  Sex: Female

DRUGS (8)
  1. TECFIDERA [Suspect]
     Indication: MULTIPLE SCLEROSIS
     Route: 048
     Dates: start: 20140210
  2. ADDERALL [Concomitant]
  3. CYMBALTA [Concomitant]
  4. OMEGA 3 [Concomitant]
  5. TOPAMAX [Concomitant]
  6. TRAZADONE HCL [Concomitant]
  7. VITAMIN D3 [Concomitant]
  8. WELLBUTRIN [Concomitant]

REACTIONS (1)
  - Somnolence [Not Recovered/Not Resolved]
